FAERS Safety Report 4727054-7 (Version None)
Quarter: 2005Q3

REPORT INFORMATION
  Report Type: 
  Country: None (occurrence: None)
  Receive Date: 20050726
  Receipt Date: 20050726
  Transmission Date: 20060218
  Serious: Yes (Death)
  Sender: FDA-Public Use
  Company Number: None

PATIENT
  Sex: Male
  Weight: 63.5036 kg

DRUGS (5)
  1. OXANDRIN [Suspect]
     Indication: WEIGHT DECREASED
     Dosage: 10 MG PO BID
     Route: 048
  2. GEMZAR [Concomitant]
  3. TARCEVA [Concomitant]
  4. LEUCOVORIN [Concomitant]
  5. FLUOROURACIL [Concomitant]

REACTIONS (3)
  - DEHYDRATION [None]
  - PAIN [None]
  - PANCREATIC CARCINOMA [None]
